FAERS Safety Report 4973876-7 (Version None)
Quarter: 2006Q2

REPORT INFORMATION
  Report Type: 
  Country: None (occurrence: None)
  Receive Date: 20060410
  Receipt Date: 20060404
  Transmission Date: 20061013
  Serious: Yes (Other)
  Sender: FDA-Public Use
  Company Number: CHPA2006US03517

PATIENT
  Age: 27 Year
  Sex: Male
  Weight: 74.8 kg

DRUGS (1)
  1. EXCEDRIN EXTRA STRENGTH (NCH)(CAFFEINE CITRATE, ACETYLSALICYLIC ACID, [Suspect]
     Indication: TENSION HEADACHE
     Dosage: 2 CAPLETS A DAY ORAL
     Route: 048

REACTIONS (2)
  - DRUG ABUSER [None]
  - NO ADVERSE DRUG EFFECT [None]
